FAERS Safety Report 8555896-9 (Version None)
Quarter: 2012Q3

REPORT INFORMATION
  Report Type: 
  Country: None (occurrence: None)
  Receive Date: 20120801
  Receipt Date: 20120723
  Transmission Date: 20120928
  Serious: No
  Sender: FDA-Public Use
  Company Number: US-BIOGENIDEC-2012BI025270

PATIENT
  Age: 61 Year
  Sex: Female

DRUGS (8)
  1. AVONEX [Suspect]
     Indication: MULTIPLE SCLEROSIS
     Route: 030
     Dates: start: 20120703, end: 20120701
  2. PRILOSEC [Concomitant]
     Indication: GASTRITIS
     Route: 048
     Dates: start: 20120301
  3. PRILOSEC [Concomitant]
     Indication: DIVERTICULUM
     Route: 048
     Dates: start: 20120301
  4. VISTARIL [Concomitant]
     Indication: ANXIETY
     Route: 048
  5. PRILOSEC [Concomitant]
     Indication: HIATUS HERNIA
     Route: 048
     Dates: start: 20120301
  6. TYLENOL (CAPLET) [Concomitant]
     Indication: PREMEDICATION
  7. AVONEX [Suspect]
     Route: 030
     Dates: start: 20120709
  8. PRILOSEC [Concomitant]
     Indication: GASTROOESOPHAGEAL REFLUX DISEASE
     Route: 048
     Dates: start: 20120301

REACTIONS (7)
  - FATIGUE [None]
  - DIARRHOEA [None]
  - PAIN [None]
  - PARAESTHESIA [None]
  - NAUSEA [None]
  - MUSCLE SPASMS [None]
  - INFLUENZA LIKE ILLNESS [None]
